FAERS Safety Report 8922635 (Version 1)
Quarter: 2012Q4

REPORT INFORMATION
  Report Type: 
  Country: US (occurrence: US)
  Receive Date: 20121125
  Receipt Date: 20121125
  Transmission Date: 20130627
  Serious: Yes (Other)
  Sender: FDA-Public Use
  Company Number: US-BAYER-2012-121969

PATIENT
  Age: 42 Year
  Sex: Male
  Weight: 92.06 kg

DRUGS (2)
  1. BAYER ADVANCED ASPIRIN EXTRA STRENGTH [Suspect]
     Indication: HEADACHE
     Dosage: 500 mg, 2 doses
     Route: 048
     Dates: start: 201211, end: 201211
  2. SUDAFED [Concomitant]

REACTIONS (1)
  - Haematochezia [Not Recovered/Not Resolved]
